FAERS Safety Report 8521690 (Version 2)
Quarter: 2012Q4

REPORT INFORMATION
  Report Type: 
  Country: US (occurrence: US)
  Receive Date: 20120419
  Receipt Date: 20121019
  Transmission Date: 20130627
  Serious: No
  Sender: FDA-Public Use
  Company Number: US-BRISTOL-MYERS SQUIBB COMPANY-16329773

PATIENT
  Age: 60 Year
  Sex: Male

DRUGS (9)
  1. YERVOY [Suspect]
     Indication: MALIGNANT MELANOMA
     Dosage: 2nd dose on 14Dec11
Last dose:27Feb2012
     Route: 042
     Dates: start: 20111123
  2. KEPPRA [Concomitant]
     Dates: start: 20110923
  3. ONDANSETRON [Concomitant]
     Dosage: PRN
     Dates: start: 20111025
  4. COMPAZINE [Concomitant]
     Dosage: PRN
     Dates: start: 20111109
  5. GRANISETRON [Concomitant]
     Dates: start: 20111205
  6. PREDNISONE [Concomitant]
  7. LEVOTHYROXINE SODIUM [Concomitant]
     Dosage: Tablet
     Route: 048
  8. CENTRUM SILVER [Concomitant]
     Route: 048
  9. TYLENOL [Concomitant]
     Route: 048

REACTIONS (2)
  - Hypopituitarism [Unknown]
  - Hypothyroidism [Unknown]
